FAERS Safety Report 7783113-6 (Version None)
Quarter: 2011Q3

REPORT INFORMATION
  Report Type: 
  Country: None (occurrence: None)
  Receive Date: 20110928
  Receipt Date: 20110915
  Transmission Date: 20111222
  Serious: Yes (Other)
  Sender: FDA-Public Use
  Company Number: PHHY2011BR82626

PATIENT
  Age: 73 Year
  Sex: Male
  Weight: 101 kg

DRUGS (4)
  1. EXFORGE [Suspect]
     Dosage: VALSARTAN 80 MG/ AMLODIPINE 5 MG
  2. EXFORGE [Suspect]
     Dosage: 160 MG VALS AND 5 MG AMLO
  3. EXFORGE [Suspect]
     Dosage: 320 MG VALS AND 5 MG AMLO
  4. PHENOFIBRATE [Concomitant]
     Dosage: 250 MG, UNK

REACTIONS (3)
  - WEIGHT DECREASED [None]
  - LEFT VENTRICULAR HYPERTROPHY [None]
  - BLOOD GLUCOSE ABNORMAL [None]
